FAERS Safety Report 17518481 (Version 1)
Quarter: 2020Q1

REPORT INFORMATION
  Report Type: Spontaneous
  Country: SE (occurrence: SE)
  Receive Date: 20200309
  Receipt Date: 20200309
  Transmission Date: 20200409
  Serious: Yes (Other)
  Sender: FDA-Public Use
  Company Number: SE-BAYER-2020-036782

PATIENT
  Age: 27 Year
  Sex: Female

DRUGS (1)
  1. YASMIN [Suspect]
     Active Substance: DROSPIRENONE\ETHINYL ESTRADIOL
     Dosage: UNK
     Route: 048
     Dates: start: 201407, end: 201801

REACTIONS (1)
  - Alopecia areata [Recovered/Resolved]

NARRATIVE: CASE EVENT DATE: 2017
